FAERS Safety Report 9058777 (Version 3)
Quarter: 2014Q3

REPORT INFORMATION
  Report Type: Spontaneous
  Country: FR (occurrence: FR)
  Receive Date: 20130204
  Receipt Date: 20140702
  Transmission Date: 20150326
  Serious: Yes (Other)
  Sender: FDA-Public Use
  Company Number: PHHY2013FR009790

PATIENT
  Age: 55 Year
  Sex: Female

DRUGS (1)
  1. GILENYA [Suspect]
     Active Substance: FINGOLIMOD HYDROCHLORIDE
     Route: 048

REACTIONS (7)
  - Hypertension [Recovered/Resolved]
  - Weight decreased [Unknown]
  - Visual acuity reduced [Recovered/Resolved]
  - Weight increased [Recovered/Resolved]
  - Macular oedema [Recovered/Resolved]
  - Visual impairment [Unknown]
  - Generalised oedema [Recovered/Resolved]
